FAERS Safety Report 4704685-1 (Version None)
Quarter: 2005Q2

REPORT INFORMATION
  Report Type: 
  Country: None (occurrence: None)
  Receive Date: 20050629
  Receipt Date: 20050617
  Transmission Date: 20051028
  Serious: Yes (Hospitalization)
  Sender: FDA-Public Use
  Company Number: ERP05000098

PATIENT
  Age: 72 Year
  Sex: Female

DRUGS (2)
  1. MACRODANTIN [Suspect]
     Dates: start: 20050501
  2. LITIUM (LITHIUM [Suspect]

REACTIONS (3)
  - DEPRESSION [None]
  - DRUG INTERACTION [None]
  - MALAISE [None]
